FAERS Safety Report 6681538-3 (Version None)
Quarter: 2010Q2

REPORT INFORMATION
  Report Type: 
  Country: None (occurrence: None)
  Receive Date: 20100414
  Receipt Date: 20100405
  Transmission Date: 20101027
  Serious: Yes (Other)
  Sender: FDA-Public Use
  Company Number: PHHY2010CH21087

PATIENT
  Age: 45 Year
  Sex: Female

DRUGS (3)
  1. MYCOPHENOLATE MOFETIL [Suspect]
     Indication: STEM CELL TRANSPLANT
  2. PREDNISOLONE [Suspect]
     Indication: STEM CELL TRANSPLANT
  3. TACROLIMUS [Suspect]
     Indication: STEM CELL TRANSPLANT

REACTIONS (11)
  - BRONCHOPULMONARY ASPERGILLOSIS [None]
  - CHEST PAIN [None]
  - CHRONIC GRAFT VERSUS HOST DISEASE [None]
  - ENTEROCOCCAL INFECTION [None]
  - INFLUENZA [None]
  - LUNG LOBECTOMY [None]
  - OBLITERATIVE BRONCHIOLITIS [None]
  - PRODUCTIVE COUGH [None]
  - RHINITIS [None]
  - STAPHYLOCOCCAL INFECTION [None]
  - ZYGOMYCOSIS [None]
